FAERS Safety Report 8141517-6 (Version None)
Quarter: 2012Q1

REPORT INFORMATION
  Report Type: 
  Country: None (occurrence: None)
  Receive Date: 20120216
  Receipt Date: 20120209
  Transmission Date: 20120608
  Serious: Yes (Hospitalization)
  Sender: FDA-Public Use
  Company Number: DE-UCBSA-051344

PATIENT
  Sex: Female
  Weight: 72 kg

DRUGS (10)
  1. CLARITHROMYCIN [Concomitant]
     Dates: start: 20111114
  2. METHOTREXATE SODIUM [Concomitant]
     Dates: start: 20111123
  3. CERTOLIZUMAB PEGOL [Suspect]
     Indication: RHEUMATOID ARTHRITIS
     Dosage: NO OF DOSES RECEIVED -APPROXIMATELY 19
     Route: 058
     Dates: start: 20111123, end: 20120125
  4. CERTOLIZUMAB PEGOL [Suspect]
     Route: 058
     Dates: start: 20110621, end: 20111109
  5. IBUPROFEN [Concomitant]
     Indication: RHEUMATOID ARTHRITIS
     Dates: start: 20111026
  6. FOLIC ACID [Concomitant]
     Indication: RHEUMATOID ARTHRITIS
     Dates: start: 20110728
  7. LEVOTHYROXINE SODIUM [Concomitant]
     Indication: HYPERTHYROIDISM
     Dates: start: 20050101
  8. CALCIUM D3 [Concomitant]
     Indication: OSTEOPOROSIS PROPHYLAXIS
     Dates: start: 20110308
  9. PREDNISONE TAB [Concomitant]
     Indication: RHEUMATOID ARTHRITIS
     Dates: start: 20110301
  10. METHOTREXATE SODIUM [Concomitant]
     Indication: RHEUMATOID ARTHRITIS
     Dates: start: 20111026, end: 20111114

REACTIONS (1)
  - TUBERCULOSIS [None]
